FAERS Safety Report 7659803-2 (Version None)
Quarter: 2011Q3

REPORT INFORMATION
  Report Type: 
  Country: None (occurrence: None)
  Receive Date: 20110805
  Receipt Date: 20110803
  Transmission Date: 20111222
  Serious: Yes (Hospitalization)
  Sender: FDA-Public Use
  Company Number: CHPA2011IT10361

PATIENT
  Sex: Female

DRUGS (1)
  1. IBUPROFEN [Suspect]
     Indication: ALLERGY TEST
     Dosage: 400 MG, QD
     Route: 048
     Dates: start: 20110729, end: 20110730

REACTIONS (2)
  - THROAT TIGHTNESS [None]
  - OFF LABEL USE [None]
